FAERS Safety Report 10733451 (Version 2)
Quarter: 2015Q1

REPORT INFORMATION
  Report Type: Report from Study
  Country: US (occurrence: US)
  Receive Date: 20150123
  Receipt Date: 20150202
  Transmission Date: 20150721
  Serious: Yes (Hospitalization)
  Sender: FDA-Public Use
  Company Number: US-SA-2014SA152872

PATIENT
  Age: 41 Year
  Sex: Female

DRUGS (2)
  1. AUBAGIO [Suspect]
     Active Substance: TERIFLUNOMIDE
     Indication: MULTIPLE SCLEROSIS
     Route: 065
     Dates: start: 20130501, end: 20130801
  2. AUBAGIO [Suspect]
     Active Substance: TERIFLUNOMIDE
     Indication: MULTIPLE SCLEROSIS
     Route: 048
     Dates: start: 20141031, end: 20141127

REACTIONS (8)
  - Loss of consciousness [Unknown]
  - Balance disorder [Not Recovered/Not Resolved]
  - Dysarthria [Unknown]
  - Peripheral venous disease [Unknown]
  - Sleep disorder [Unknown]
  - Nuclear magnetic resonance imaging abnormal [Unknown]
  - Multiple sclerosis relapse [Not Recovered/Not Resolved]
  - Peripheral swelling [Unknown]
